FAERS Safety Report 12396086 (Version 3)
Quarter: 2016Q3

REPORT INFORMATION
  Report Type: Spontaneous
  Country: GB (occurrence: GB)
  Receive Date: 20160524
  Receipt Date: 20160804
  Transmission Date: 20161109
  Serious: Yes (Hospitalization, Other)
  Sender: FDA-Public Use
  Company Number: GB-ROCHE-1761062

PATIENT
  Age: 72 Year
  Sex: Female
  Weight: 72 kg

DRUGS (6)
  1. CARBIMAZOLE [Concomitant]
     Active Substance: CARBIMAZOLE
     Indication: HYPERTHYROIDISM
     Route: 048
     Dates: end: 20160501
  2. RANITIDINE. [Concomitant]
     Active Substance: RANITIDINE
     Indication: DYSPEPSIA
     Route: 048
     Dates: start: 20160501
  3. ESOMEPRAZOLE [Concomitant]
     Active Substance: ESOMEPRAZOLE
     Indication: HYPERTHYROIDISM
     Route: 048
  4. HERCEPTIN [Suspect]
     Active Substance: TRASTUZUMAB
     Indication: BREAST CANCER
     Route: 058
     Dates: start: 20160212, end: 20160404
  5. PACLITAXEL. [Concomitant]
     Active Substance: PACLITAXEL
     Route: 065
     Dates: start: 20160212, end: 20160219
  6. DOMPERIDONE [Concomitant]
     Active Substance: DOMPERIDONE
     Indication: MALAISE
     Route: 048

REACTIONS (14)
  - Malaise [Unknown]
  - Pain in extremity [Unknown]
  - Skin disorder [Unknown]
  - Cellulitis [Unknown]
  - Thyroid disorder [Unknown]
  - Cognitive disorder [Unknown]
  - Eye disorder [Unknown]
  - Encephalitis [Unknown]
  - Metastases to eye [Unknown]
  - Skin fissures [Unknown]
  - Hypothyroidism [Unknown]
  - Sepsis [Unknown]
  - Fatigue [Unknown]
  - Confusional state [Unknown]
